FAERS Safety Report 11902523 (Version 2)
Quarter: 2016Q2

REPORT INFORMATION
  Report Type: Spontaneous
  Country: US (occurrence: US)
  Receive Date: 20160108
  Receipt Date: 20160412
  Transmission Date: 20160815
  Serious: No
  Sender: FDA-Public Use
  Company Number: US-LUNDBECK-DKLU2006598

PATIENT
  Age: 71 Year
  Sex: Male

DRUGS (1)
  1. NORTHERA [Suspect]
     Active Substance: DROXIDOPA
     Indication: PRODUCT USED FOR UNKNOWN INDICATION
     Route: 065
     Dates: start: 20151107

REACTIONS (2)
  - Gastrointestinal disorder [Unknown]
  - Fatigue [Unknown]

NARRATIVE: CASE EVENT DATE: 201601
